FAERS Safety Report 6328136-9 (Version None)
Quarter: 2009Q3

REPORT INFORMATION
  Report Type: 
  Country: None (occurrence: None)
  Receive Date: 20090825
  Receipt Date: 20081125
  Transmission Date: 20100115
  Serious: No
  Sender: FDA-Public Use
  Company Number: US-ABBOTT-08P-163-0489863-00

PATIENT
  Age: 52 Year
  Sex: Female
  Weight: 56.75 kg

DRUGS (6)
  1. SYNTHROID [Suspect]
     Indication: HYPOTHYROIDISM
     Dosage: 25MCG QD - ADJUSTED ACCORDING TO THYROID BLOOD TESTS AND HYPERSENSITIVITY
     Route: 048
     Dates: start: 20080301
  2. SYNTHROID [Suspect]
     Dosage: 1/2 PILL ADJUSTED
     Route: 048
  3. SYNTHROID [Suspect]
     Dosage: 3/4  OF A PILL - ADJUSTED ACCORDING TO THYROID BLOOD TESTS AND HYPERSENSITIVITY
     Route: 048
  4. CLONAZEPAM [Concomitant]
     Indication: ANXIETY
     Route: 048
  5. TRIAMCINOLONE ACETONIDE [Concomitant]
     Indication: SEASONAL ALLERGY
     Dosage: 1 SPRAY EACH NARE DAILY
     Route: 045
  6. TRIAMCINOLONE ACETONIDE [Concomitant]
     Indication: ALLERGIC SINUSITIS

REACTIONS (5)
  - AGITATION [None]
  - INSOMNIA [None]
  - NERVOUSNESS [None]
  - PALPITATIONS [None]
  - TREMOR [None]
